FAERS Safety Report 6266703-1 (Version None)
Quarter: 2009Q3

REPORT INFORMATION
  Report Type: 
  Country: None (occurrence: None)
  Receive Date: 20090714
  Receipt Date: 20071019
  Transmission Date: 20100115
  Serious: Yes (Hospitalization, Other)
  Sender: FDA-Public Use
  Company Number: US-ASTRAZENECA-2007UW13879

PATIENT
  Age: 37 Year
  Sex: Female
  Weight: 66.7 kg

DRUGS (9)
  1. SEROQUEL [Suspect]
     Indication: SLEEP DISORDER
     Route: 048
     Dates: start: 20040101, end: 20051101
  2. SEROQUEL [Suspect]
     Dosage: 25 MG-50 MG
     Route: 048
     Dates: start: 20050317
  3. LEXAPRO [Concomitant]
     Dosage: 10 MG-15 MG
     Route: 048
     Dates: start: 20050329
  4. TRAZODONE [Concomitant]
     Route: 048
     Dates: start: 20050411
  5. KLONOPIN [Concomitant]
     Route: 048
     Dates: start: 20050419
  6. LISINOPRIL [Concomitant]
     Route: 048
     Dates: start: 20040807
  7. VICODIN [Concomitant]
     Indication: HEADACHE
     Dosage: 5/500 MG THREE TO FOUR TIMES A DAY
     Dates: start: 20021104
  8. BENTYL [Concomitant]
     Indication: CROHN'S DISEASE
     Dosage: 20 MG THREE TO FOUR TIMES A DAY
     Route: 048
     Dates: start: 19900617
  9. LOPRESSOR [Concomitant]
     Dates: start: 20051212

REACTIONS (17)
  - ABDOMINAL PAIN [None]
  - ACUTE SINUSITIS [None]
  - ANEURYSM RUPTURED [None]
  - CAROTID ARTERY ANEURYSM [None]
  - CHOLECYSTITIS CHRONIC [None]
  - CHOLELITHIASIS [None]
  - CONTUSION [None]
  - CROHN'S DISEASE [None]
  - DUODENAL ULCER PERFORATION [None]
  - HEADACHE [None]
  - INTESTINAL PERFORATION [None]
  - MUSCLE STRAIN [None]
  - PANCREATITIS [None]
  - PANCREATITIS CHRONIC [None]
  - SUBARACHNOID HAEMORRHAGE [None]
  - TRAUMATIC BRAIN INJURY [None]
  - UPPER RESPIRATORY TRACT INFECTION [None]
